FAERS Safety Report 6902154-1 (Version None)
Quarter: 2010Q3

REPORT INFORMATION
  Report Type: 
  Country: None (occurrence: None)
  Receive Date: 20100803
  Receipt Date: 20100728
  Transmission Date: 20110219
  Serious: Yes (Other)
  Sender: FDA-Public Use
  Company Number: SG-MERCK-1007SGP00015

PATIENT
  Age: 69 Year
  Sex: Female

DRUGS (1)
  1. PRIMAXIN [Suspect]
     Indication: URINARY TRACT INFECTION
     Route: 065

REACTIONS (1)
  - ACUTE GENERALISED EXANTHEMATOUS PUSTULOSIS [None]
